FAERS Safety Report 6014924-5 (Version None)
Quarter: 2008Q4

REPORT INFORMATION
  Report Type: 
  Country: None (occurrence: None)
  Receive Date: 20081219
  Receipt Date: 20081210
  Transmission Date: 20090506
  Serious: Yes (Hospitalization)
  Sender: FDA-Public Use
  Company Number: DE-B.I. PHARMACEUTICALS,INC./RIDGEFIELD-2008-DE-07739DE

PATIENT
  Sex: Male

DRUGS (38)
  1. SPIRIVA [Suspect]
     Indication: CHRONIC OBSTRUCTIVE PULMONARY DISEASE
     Dosage: 1-0-0
     Route: 055
     Dates: start: 20060520
  2. LASIX [Suspect]
     Indication: POLYURIA
     Dosage: 3X40ML / 80 ML-80ML-0 / 40ML-40ML-0
     Route: 042
     Dates: start: 20060519, end: 20060606
  3. METHIMAZOLE [Suspect]
     Indication: HYPERTHYROIDISM
     Dosage: 1-0-0/1-0-1/1-1-1/ 2-1-1/ 2-1-2 /2-0-2
     Route: 048
     Dates: start: 20060513, end: 20060611
  4. IRENAT [Suspect]
     Indication: HYPERTHYROIDISM
     Dosage: 0-0-20/20-20-20 DROPS
     Route: 048
     Dates: start: 20060513, end: 20060605
  5. IRENAT [Suspect]
     Dosage: 0-0-20/20-20-20 DROPS
     Route: 048
     Dates: start: 20060614, end: 20060615
  6. CLEXANE [Suspect]
     Indication: THROMBOSIS PROPHYLAXIS
     Dosage: 0-0-2/0-0-1
     Route: 058
     Dates: start: 20060519
  7. BISOPROLOL FUMARATE [Suspect]
     Indication: HYPERTENSION
     Dosage: 1-0-0
     Route: 048
     Dates: start: 20060518
  8. DELIX [Suspect]
     Indication: HYPERTENSION
     Dosage: 1-0-0/1-1-0/2-0-0/1-0-1
     Route: 048
     Dates: start: 20060519
  9. OXIS [Suspect]
     Indication: CHRONIC OBSTRUCTIVE PULMONARY DISEASE
     Dosage: 2-0-2
     Route: 055
     Dates: start: 20060520
  10. ASPIRIN [Suspect]
     Indication: THROMBOSIS PROPHYLAXIS
     Dosage: 500MG-0-0/100MG
     Route: 048
     Dates: start: 20060513
  11. PLAVIX [Suspect]
     Indication: THROMBOSIS PROPHYLAXIS
     Dosage: 300MG-0-0/75MG-0-0
     Route: 048
     Dates: start: 20060513
  12. METRONIDAZOLE HCL [Suspect]
     Indication: PSEUDOMEMBRANOUS COLITIS
     Dosage: 1-1-1
     Route: 042
     Dates: start: 20060522, end: 20060528
  13. ALDACTONE [Suspect]
     Indication: POLYURIA
     Dosage: 1-0-0
     Route: 048
     Dates: start: 20060525
  14. ALDACTONE [Suspect]
     Indication: OEDEMA
  15. NITROGLYCERIN [Suspect]
     Indication: ANGINA PECTORIS
     Dosage: IF REQUIRED
     Route: 055
     Dates: start: 20080531
  16. CEFUROXIME [Suspect]
     Indication: DIARRHOEA
     Dosage: 1-1-1
     Route: 042
     Dates: start: 20060601, end: 20060602
  17. ZOCOR [Concomitant]
     Indication: HYPERCHOLESTEROLAEMIA
     Dosage: 0-0-1
     Route: 048
     Dates: start: 20080518
  18. ACC 600 MG [Concomitant]
     Indication: PRODUCTIVE COUGH
     Dosage: 1-0-0
     Route: 048
     Dates: start: 20060519
  19. EUGLUCON 7,5 MG [Concomitant]
     Indication: DIABETES MELLITUS
     Dosage: 1-0-1/2
     Route: 048
     Dates: start: 20060101
  20. INSULIN INJLSG NACH BZ [Concomitant]
     Indication: DIABETES MELLITUS
     Dosage: LIKE BLOOD SUGAR
     Route: 058
     Dates: start: 20060101
  21. DECORTIN 10 MG [Concomitant]
     Indication: CHRONIC OBSTRUCTIVE PULMONARY DISEASE
     Dosage: 1-0-0
     Route: 048
     Dates: start: 20060101, end: 20060612
  22. ESIDRIX 25 MG [Concomitant]
     Indication: HYPERTENSION
     Dosage: 1-0-0
     Route: 048
     Dates: start: 20060101
  23. KALINOR BRAUSE [Concomitant]
     Indication: HYPERKALAEMIA
     Dosage: 1-0-0
     Route: 048
     Dates: start: 20060523, end: 20060524
  24. LOCAL ANAESTETIC UNKNOWN [Concomitant]
     Indication: PNEUMONIA ASPIRATION
     Dosage: 1-0-0
     Route: 058
     Dates: start: 20060524
  25. CLEMASTINE FUMARATE [Concomitant]
     Indication: PRURITUS
     Dosage: 0-0-1/0-1-0/1-0-1
     Route: 048
  26. LASIX [Concomitant]
     Dosage: 1-0-1/1/2-1/2-0
     Route: 048
     Dates: start: 20060606
  27. HEPARIN INJLSG 25000IE [Concomitant]
     Indication: THROMBOSIS PROPHYLAXIS
     Dosage: 25000IE
     Route: 042
     Dates: start: 20060607
  28. ZYRTEC [Concomitant]
     Indication: PRURITUS
     Dosage: 1-0-1
     Route: 048
     Dates: start: 20060607, end: 20060611
  29. KONTRASTMITTEL INJLSG [Concomitant]
     Indication: ARTERIOGRAM CORONARY
     Route: 042
  30. KONTRASTMITTEL INJLSG [Concomitant]
     Indication: COMPUTERISED TOMOGRAM
  31. NA CL INFLSG 50 ML 1000 ML [Concomitant]
     Dosage: 50 ML / 1000 ML
     Route: 042
  32. TAVEGIL INJLSG [Concomitant]
     Indication: PRURITUS
     Dosage: 1-0-0
     Route: 042
     Dates: start: 20060610
  33. SOLU DECORTIN H INJLSG 150 MG [Concomitant]
     Indication: SKIN DISORDER
     Route: 042
  34. SOVENTOL OINTMENT [Concomitant]
     Indication: SKIN DISORDER
     Route: 061
     Dates: start: 20060611, end: 20060612
  35. CARBIMAZOL 10 MG [Concomitant]
     Indication: HYPERTHYROIDISM
     Dosage: 1-0-1
     Route: 048
     Dates: start: 20060612, end: 20060616
  36. PARACETAMOL 1 G [Concomitant]
     Indication: PYREXIA
     Dosage: 1-0-0
     Route: 048
     Dates: start: 20060617
  37. JONOSTERIL INFLSG 1000 ML [Concomitant]
     Dates: start: 20060617
  38. CLAFORAN INJLSG 400 MG [Concomitant]
     Indication: PSEUDOMEMBRANOUS COLITIS
     Dosage: 1-0-0
     Route: 042
     Dates: start: 20060522

REACTIONS (1)
  - STEVENS-JOHNSON SYNDROME [None]
